FAERS Safety Report 4983415-2 (Version None)
Quarter: 2006Q2

REPORT INFORMATION
  Report Type: 
  Country: None (occurrence: None)
  Receive Date: 20060426
  Receipt Date: 20060406
  Transmission Date: 20061013
  Serious: Yes (Hospitalization)
  Sender: FDA-Public Use
  Company Number: US-MERCK-0604USA01067

PATIENT
  Age: 63 Year
  Sex: Female
  Weight: 114 kg

DRUGS (6)
  1. VIOXX [Suspect]
     Indication: ROTATOR CUFF SYNDROME
     Route: 048
     Dates: start: 20030301, end: 20040201
  2. GLUCOTROL [Concomitant]
     Indication: DIABETES MELLITUS
     Route: 065
  3. ASPIRIN [Concomitant]
     Indication: CEREBROVASCULAR ACCIDENT PROPHYLAXIS
     Route: 065
  4. NORVASC [Concomitant]
     Route: 065
  5. HYDROCHLOROTHIAZIDE [Concomitant]
     Indication: CARDIAC DISORDER
     Route: 065
     Dates: start: 20030131
  6. LISINOPRIL [Concomitant]
     Indication: HYPERTENSION
     Route: 065
     Dates: start: 20030131

REACTIONS (11)
  - BLOOD CHOLESTEROL INCREASED [None]
  - CARDIAC FAILURE CONGESTIVE [None]
  - DIABETES MELLITUS [None]
  - ESSENTIAL HYPERTENSION [None]
  - GASTROINTESTINAL HAEMORRHAGE [None]
  - OSTEOARTHRITIS [None]
  - POLYMYALGIA RHEUMATICA [None]
  - RHABDOMYOLYSIS [None]
  - SPINAL COLUMN STENOSIS [None]
  - SPINAL OSTEOARTHRITIS [None]
  - TRANSIENT ISCHAEMIC ATTACK [None]
